FAERS Safety Report 7792119-2 (Version None)
Quarter: 2011Q3

REPORT INFORMATION
  Report Type: 
  Country: None (occurrence: None)
  Receive Date: 20110930
  Receipt Date: 20110930
  Transmission Date: 20111222
  Serious: No
  Sender: FDA-Public Use
  Company Number: None

PATIENT
  Sex: Male
  Weight: 105.2345 kg

DRUGS (2)
  1. CRESTOR [Suspect]
     Indication: LOW DENSITY LIPOPROTEIN INCREASED
     Dosage: 1 TABLET DAILY
     Dates: start: 20110517, end: 20110701
  2. LIPITOR [Suspect]
     Indication: LOW DENSITY LIPOPROTEIN INCREASED
     Dosage: 1/2 TABLET DAILY
     Dates: start: 20110112, end: 20110515

REACTIONS (4)
  - MYALGIA [None]
  - HYPOTONIA [None]
  - BONE PAIN [None]
  - BLOOD GLUCOSE INCREASED [None]
